FAERS Safety Report 7376634-1 (Version None)
Quarter: 2011Q1

REPORT INFORMATION
  Report Type: 
  Country: None (occurrence: None)
  Receive Date: 20110317
  Receipt Date: 20110304
  Transmission Date: 20110831
  Serious: Yes (Life-Threatening, Hospitalization)
  Sender: FDA-Public Use
  Company Number: DSA_45176_2011

PATIENT
  Age: 48 Year
  Sex: Male

DRUGS (5)
  1. FLUOROURACIL [Suspect]
     Indication: COLON CANCER
     Dosage: (DF UNKNOWN)
  2. RAMIPRIL [Suspect]
     Indication: PRODUCT USED FOR UNKNOWN INDICATION
     Dosage: (DF UNKNOWN)
  3. DILTIAZEM HCL [Suspect]
     Indication: PRODUCT USED FOR UNKNOWN INDICATION
     Dosage: (DF UNKNOWN)
  4. OXALIPLATIN [Suspect]
     Indication: COLON CANCER
     Dosage: (DF UNKNOWN)
  5. CALCIUM FOLINATE (CALCIUM FOLINATE) [Suspect]
     Indication: COLON CANCER
     Dosage: (DF UNKNOWN)

REACTIONS (6)
  - ACUTE CORONARY SYNDROME [None]
  - LEFT VENTRICULAR DYSFUNCTION [None]
  - CARDIAC FAILURE ACUTE [None]
  - VENTRICULAR HYPOKINESIA [None]
  - STRESS CARDIOMYOPATHY [None]
  - CARDIAC ARREST [None]
